FAERS Safety Report 4849826-0 (Version None)
Quarter: 2005Q4

REPORT INFORMATION
  Report Type: 
  Country: None (occurrence: None)
  Receive Date: 20051107
  Receipt Date: 20050223
  Transmission Date: 20060501
  Serious: Yes (Other)
  Sender: FDA-Public Use
  Company Number: PHEH2005US02406

PATIENT
  Age: 63 Year
  Sex: Female

DRUGS (5)
  1. ESTROGENS(ESTROGENS) [Suspect]
     Indication: MENOPAUSAL SYMPTOMS
  2. PROGESTERONE [Suspect]
     Indication: MENOPAUSAL SYMPTOMS
  3. PREMARIN [Suspect]
     Indication: MENOPAUSAL SYMPTOMS
  4. PREMPRO [Suspect]
     Indication: MENOPAUSAL SYMPTOMS
  5. PROVERA [Suspect]
     Indication: MENOPAUSAL SYMPTOMS

REACTIONS (8)
  - ANXIETY [None]
  - BIOPSY BREAST ABNORMAL [None]
  - BODY DYSMORPHIC DISORDER [None]
  - BREAST CANCER IN SITU [None]
  - BREAST MASS [None]
  - MALIGNANT BREAST LUMP REMOVAL [None]
  - PAIN [None]
  - PSYCHIATRIC SYMPTOM [None]
